FAERS Safety Report 10391904 (Version 2)
Quarter: 2014Q3

REPORT INFORMATION
  Report Type: Spontaneous
  Country: JP (occurrence: JP)
  Receive Date: 20140819
  Receipt Date: 20140901
  Transmission Date: 20150326
  Serious: Yes (Other)
  Sender: FDA-Public Use
  Company Number: PHHY2014JP101522

PATIENT
  Age: 33 Year
  Sex: Female

DRUGS (1)
  1. VOLTAREN [Suspect]
     Active Substance: DICLOFENAC SODIUM
     Dosage: 25 MG, DAILY
     Route: 054
     Dates: start: 201310, end: 201310

REACTIONS (1)
  - Acute generalised exanthematous pustulosis [Unknown]
